FAERS Safety Report 23763095 (Version 1)
Quarter: 2024Q2

REPORT INFORMATION
  Report Type: Report from Study
  Country: US (occurrence: None)
  Receive Date: 20240419
  Receipt Date: 20240419
  Transmission Date: 20240716
  Serious: Yes (Other)
  Sender: FDA-Public Use
  Company Number: 2024A090248

PATIENT
  Sex: Male

DRUGS (1)
  1. CALQUENCE [Suspect]
     Active Substance: ACALABRUTINIB
     Indication: Chronic lymphocytic leukaemia
     Route: 048
     Dates: start: 202301

REACTIONS (8)
  - Accident at work [Unknown]
  - Back pain [Unknown]
  - Proctalgia [Unknown]
  - Depression [Unknown]
  - Malaise [Unknown]
  - General physical health deterioration [Unknown]
  - Emotional disorder [Unknown]
  - Chest pain [Unknown]
